FAERS Safety Report 4512364-9 (Version None)
Quarter: 2004Q4

REPORT INFORMATION
  Report Type: 
  Country: None (occurrence: None)
  Receive Date: 20041123
  Receipt Date: 20041110
  Transmission Date: 20050328
  Serious: Yes (Hospitalization)
  Sender: FDA-Public Use
  Company Number: 2004AL001439

PATIENT
  Age: 76 Year
  Sex: Male

DRUGS (5)
  1. OXAZEPAM [Suspect]
     Dosage: QD; PO
     Route: 048
     Dates: start: 20040801, end: 20041005
  2. EXACYL ({NULL}) [Suspect]
     Dosage: TID; PO
     Route: 048
     Dates: end: 20041005
  3. FERO-GRAD LP ({NULL}) [Suspect]
     Dosage: PO
     Route: 048
     Dates: end: 20041005
  4. TARKA ({NULL}) [Suspect]
     Dosage: QD; PO
     Dates: end: 20041005
  5. ZOLPIDEM ({NULL}) [Suspect]
     Dosage: QD, PO
     Route: 048
     Dates: end: 20041005

REACTIONS (4)
  - DISSEMINATED INTRAVASCULAR COAGULATION [None]
  - EOSINOPHILIA [None]
  - INJECTION SITE HAEMORRHAGE [None]
  - THROMBOCYTOPENIA [None]
